FAERS Safety Report 20636158 (Version 1)
Quarter: 2022Q1

REPORT INFORMATION
  Report Type: Spontaneous
  Country: US (occurrence: None)
  Receive Date: 20220324
  Receipt Date: 20220324
  Transmission Date: 20220423
  Serious: No
  Sender: FDA-Public Use
  Company Number: None

PATIENT
  Sex: Female

DRUGS (1)
  1. ERLOTINIB [Suspect]
     Active Substance: ERLOTINIB
     Indication: Lung neoplasm malignant
     Dosage: 150MG DAILY ORAL
     Route: 048
     Dates: start: 202112

REACTIONS (3)
  - Onychalgia [None]
  - Fingerprint loss [None]
  - Onychoclasis [None]
